FAERS Safety Report 25960487 (Version 2)
Quarter: 2025Q4

REPORT INFORMATION
  Report Type: Spontaneous
  Country: GB (occurrence: GB)
  Receive Date: 20251027
  Receipt Date: 20251029
  Transmission Date: 20260117
  Serious: Yes (Other)
  Sender: TEVA
  Company Number: GB-MHRA-EMIS-978-5da75cee-c40d-4e0c-8a04-ea841248cf3d

PATIENT
  Age: 56 Year
  Sex: Female
  Weight: 121 kg

DRUGS (3)
  1. AMLODIPINE [Suspect]
     Active Substance: AMLODIPINE BESYLATE
     Indication: Product used for unknown indication
     Route: 065
     Dates: start: 20250526, end: 20250625
  2. ESTRADIOL [Concomitant]
     Active Substance: ESTRADIOL
     Indication: Hormone replacement therapy
     Dosage: 75 PATCHES (THERAMEX HQ UK LTD)
     Dates: start: 20250406, end: 20250519
  3. PROGESTERONE [Concomitant]
     Active Substance: PROGESTERONE
     Indication: Hormone replacement therapy
     Dosage: ON DAYS 15 TO 26 OF EACH 28 DAY CYCLE
     Dates: start: 20250406, end: 20250519

REACTIONS (1)
  - Joint swelling [Unknown]
